FAERS Safety Report 15976536 (Version 1)
Quarter: 2019Q1

REPORT INFORMATION
  Report Type: Report from Study
  Country: DO (occurrence: DO)
  Receive Date: 20190218
  Receipt Date: 20190218
  Transmission Date: 20190418
  Serious: Yes (Other)
  Sender: FDA-Public Use
  Company Number: DO-SA-2019SA041568

PATIENT
  Age: 57 Year
  Sex: Female

DRUGS (3)
  1. PLAVIX [Suspect]
     Active Substance: CLOPIDOGREL BISULFATE
     Indication: ANTICOAGULANT THERAPY
     Dosage: 1 DF, QD
     Route: 048
     Dates: start: 2012
  2. INSULIN GLARGINE [Suspect]
     Active Substance: INSULIN GLARGINE
     Indication: DIABETES MELLITUS
     Dosage: 22 IU IN THE MORNING AND 18 IU AT NIGHT, BID
     Route: 058
     Dates: start: 2012
  3. APIDRA [Suspect]
     Active Substance: INSULIN GLULISINE
     Indication: DIABETES MELLITUS
     Dosage: 4 IU, QD
     Route: 058
     Dates: start: 2012

REACTIONS (4)
  - Off label use [Unknown]
  - Renal failure [Not Recovered/Not Resolved]
  - Transplant [Unknown]
  - Hyperglycaemia [Not Recovered/Not Resolved]

NARRATIVE: CASE EVENT DATE: 2012
